FAERS Safety Report 6402795-4 (Version None)
Quarter: 2009Q4

REPORT INFORMATION
  Report Type: 
  Country: None (occurrence: None)
  Receive Date: 20091016
  Receipt Date: 20070406
  Transmission Date: 20100525
  Serious: Yes (Disabling)
  Sender: FDA-Public Use
  Company Number: US-ASTRAZENECA-2006UW07998

PATIENT
  Sex: Female
  Weight: 73 kg

DRUGS (13)
  1. SEROQUEL [Suspect]
     Indication: PSYCHOTIC DISORDER
     Dosage: 100-400 MG DAILY (FLUCTUATING)
     Route: 048
     Dates: start: 20040401
  2. ZOLOFT [Concomitant]
     Indication: POST-TRAUMATIC STRESS DISORDER
     Dosage: 50-100 MG (FLUCTUAYING)
     Dates: start: 20040615, end: 20060606
  3. ZOLOFT [Concomitant]
     Indication: DEPRESSION
     Dosage: 50-100 MG (FLUCTUAYING)
     Dates: start: 20040615, end: 20060606
  4. ZOLOFT [Concomitant]
     Indication: ANXIETY
     Dosage: 50-100 MG (FLUCTUAYING)
     Dates: start: 20040615, end: 20060606
  5. PEPCID [Concomitant]
     Dosage: 20-40 MG TWO TIMES A DAY
     Route: 048
     Dates: start: 20031111
  6. REGLAN [Concomitant]
     Route: 048
     Dates: start: 20031111
  7. LOZOL [Concomitant]
     Route: 048
     Dates: start: 20050710
  8. ENALAPRIL MALEATE [Concomitant]
     Route: 048
     Dates: start: 20050710
  9. INDOCIN [Concomitant]
     Route: 048
     Dates: start: 20050711
  10. ABILIFY [Concomitant]
     Dosage: 10-20 MG DAILY
     Dates: start: 20060106, end: 20060301
  11. DIOVAN [Concomitant]
     Dates: start: 20060106
  12. PREVACID [Concomitant]
     Dates: start: 20060106
  13. RISPERDAL [Concomitant]
     Dosage: 1-2 MG AT NIGHT
     Dates: start: 20060328

REACTIONS (1)
  - ILL-DEFINED DISORDER [None]
